FAERS Safety Report 6618783-9 (Version None)
Quarter: 2010Q1

REPORT INFORMATION
  Report Type: 
  Country: None (occurrence: None)
  Receive Date: 20100302
  Receipt Date: 20100215
  Transmission Date: 20100710
  Serious: Yes (Death)
  Sender: FDA-Public Use
  Company Number: 2010BI005667

PATIENT
  Age: 56 Year
  Sex: Male

DRUGS (8)
  1. ZEVALIN [Suspect]
     Indication: MANTLE CELL LYMPHOMA
     Dosage: 25 MCI; 1X; IV
     Route: 042
     Dates: start: 20070504, end: 20070504
  2. RITUXIMAB [Concomitant]
  3. CYCLOPHOSPHAMIDE [Concomitant]
  4. DOXORUBICIN [Concomitant]
  5. VINCRISTINE [Concomitant]
  6. DEXAMETHASONE [Concomitant]
  7. METHOTREXATE [Concomitant]
  8. CYTARABINE [Concomitant]

REACTIONS (1)
  - LOSS OF CONSCIOUSNESS [None]
